FAERS Safety Report 17400606 (Version 1)
Quarter: 2020Q1

REPORT INFORMATION
  Report Type: Spontaneous
  Country: US (occurrence: US)
  Receive Date: 20200211
  Receipt Date: 20200211
  Transmission Date: 20200409
  Serious: Yes (Other)
  Sender: FDA-Public Use
  Company Number: US-DRREDDYS-USA/USA/20/0119285

PATIENT
  Sex: Male
  Weight: 129.15 kg

DRUGS (1)
  1. ZIPRASIDONE CAPSULES 20 MG, 40 MG, 60 MG + 80 MG [Suspect]
     Active Substance: ZIPRASIDONE
     Indication: DELUSION
     Dosage: STARTED 5 TO 6 YEARS AGO
     Route: 048

REACTIONS (1)
  - Deafness [Unknown]
